FAERS Safety Report 9919256 (Version 2)
Quarter: 2014Q1

REPORT INFORMATION
  Report Type: Spontaneous
  Country: US (occurrence: US)
  Receive Date: 20140224
  Receipt Date: 20140321
  Transmission Date: 20141002
  Serious: Yes (Hospitalization)
  Sender: FDA-Public Use
  Company Number: US-JNJFOC-20140210199

PATIENT
  Sex: Female

DRUGS (1)
  1. RISPERIDONE [Suspect]
     Indication: PRODUCT USED FOR UNKNOWN INDICATION
     Route: 065

REACTIONS (6)
  - Nervous system disorder [Unknown]
  - Activities of daily living impaired [Unknown]
  - Vision blurred [Unknown]
  - Dyskinesia [Unknown]
  - Suicidal ideation [Unknown]
  - Psychotic disorder [Unknown]
